FAERS Safety Report 23083727 (Version 4)
Quarter: 2023Q4

REPORT INFORMATION
  Report Type: Spontaneous
  Country: US (occurrence: US)
  Receive Date: 20231019
  Receipt Date: 20231219
  Transmission Date: 20240109
  Serious: No
  Sender: FDA-Public Use
  Company Number: US-002147023-NVSC2023US224686

PATIENT
  Sex: Male

DRUGS (6)
  1. SANDOSTATIN LAR DEPOT [Suspect]
     Active Substance: OCTREOTIDE ACETATE
     Indication: Product used for unknown indication
     Dosage: 30 MG, Q3W
     Route: 030
  2. SANDOSTATIN LAR DEPOT [Suspect]
     Active Substance: OCTREOTIDE ACETATE
  3. SANDOSTATIN LAR DEPOT [Suspect]
     Active Substance: OCTREOTIDE ACETATE
  4. OCTREOTIDE [Suspect]
     Active Substance: OCTREOTIDE
     Indication: Product used for unknown indication
     Dosage: 0.1 MG 3 TIMES A DAY
     Route: 058
  5. OCTREOTIDE [Suspect]
     Active Substance: OCTREOTIDE
     Dosage: 100 MG, TID
     Route: 065
  6. IMODIUM [Concomitant]
     Active Substance: LOPERAMIDE HYDROCHLORIDE
     Indication: Product used for unknown indication
     Dosage: UNK
     Route: 065

REACTIONS (9)
  - Bowel movement irregularity [Unknown]
  - Feeling hot [Unknown]
  - Asthenia [Unknown]
  - Somnolence [Unknown]
  - Flushing [Unknown]
  - Flatulence [Unknown]
  - Dizziness [Unknown]
  - Abdominal pain [Unknown]
  - Pruritus [Unknown]
